FAERS Safety Report 10255111 (Version 2)
Quarter: 2014Q3

REPORT INFORMATION
  Report Type: Spontaneous
  Country: GB (occurrence: GB)
  Receive Date: 20140624
  Receipt Date: 20140711
  Transmission Date: 20150326
  Serious: Yes (Hospitalization, Disabling, Other)
  Sender: FDA-Public Use
  Company Number: GB-009507513-1406GBR010153

PATIENT
  Age: 36 Year
  Sex: Female
  Weight: 57.15 kg

DRUGS (20)
  1. MIRTAZAPINE. [Suspect]
     Active Substance: MIRTAZAPINE
     Indication: ANXIETY
     Dosage: 30 MG, UNK
     Route: 048
  2. ACYCLOVIR. [Concomitant]
     Active Substance: ACYCLOVIR
     Dosage: UNK
  3. ALBUTEROL SULFATE. [Concomitant]
     Active Substance: ALBUTEROL SULFATE
     Dosage: UNK
  4. SENNA [Concomitant]
     Active Substance: SENNA LEAF\SENNOSIDES\SENNOSIDES A AND B
     Dosage: UNK
  5. LACTULOSE. [Concomitant]
     Active Substance: LACTULOSE
     Dosage: UNK
  6. SERTRALINE HYDROCHLORIDE. [Suspect]
     Active Substance: SERTRALINE HYDROCHLORIDE
     Indication: ANXIETY
     Dosage: 50 MG, UNK
     Route: 048
  7. FOSTAIR [Concomitant]
     Dosage: UNK
  8. LORAZEPAM. [Concomitant]
     Active Substance: LORAZEPAM
     Dosage: UNK
  9. SERTRALINE HYDROCHLORIDE. [Suspect]
     Active Substance: SERTRALINE HYDROCHLORIDE
     Indication: DEPRESSION
  10. TRAMADOL HYDROCHLORIDE. [Suspect]
     Active Substance: TRAMADOL HYDROCHLORIDE
     Indication: ANXIETY
  11. MIRTAZAPINE. [Suspect]
     Active Substance: MIRTAZAPINE
     Indication: DEPRESSION
  12. ACETAMINOPHEN. [Concomitant]
     Active Substance: ACETAMINOPHEN
     Dosage: UNK
  13. ZYRTEC [Suspect]
     Active Substance: CETIRIZINE HYDROCHLORIDE
     Indication: DEPRESSION
  14. PREDNISOLONE. [Concomitant]
     Active Substance: PREDNISOLONE
     Dosage: UNK
     Route: 048
  15. BUCCASTEM [Concomitant]
     Dosage: UNK
  16. CLOZAPINE. [Concomitant]
     Active Substance: CLOZAPINE
     Indication: INSOMNIA
  17. TRAMADOL HYDROCHLORIDE. [Suspect]
     Active Substance: TRAMADOL HYDROCHLORIDE
     Indication: DEPRESSION
     Dosage: UNK
  18. ZYRTEC [Suspect]
     Active Substance: CETIRIZINE HYDROCHLORIDE
     Indication: ANXIETY
     Dosage: 10 MG, UNK
     Route: 048
  19. CLARITHROMYCIN. [Concomitant]
     Active Substance: CLARITHROMYCIN
     Dosage: UNK
  20. VENLAFAXINE HYDROCHLORIDE. [Concomitant]
     Active Substance: VENLAFAXINE HYDROCHLORIDE
     Dosage: UNK

REACTIONS (23)
  - Dizziness [Not Recovered/Not Resolved]
  - Joint stiffness [Not Recovered/Not Resolved]
  - Faecal incontinence [Unknown]
  - Convulsion [Not Recovered/Not Resolved]
  - Paraesthesia [Unknown]
  - Pain [Not Recovered/Not Resolved]
  - Memory impairment [Unknown]
  - Sleep disorder [Unknown]
  - Loss of consciousness [Not Recovered/Not Resolved]
  - Dysarthria [Unknown]
  - Visual impairment [Unknown]
  - Asthenia [Unknown]
  - Contusion [Not Recovered/Not Resolved]
  - Feeling drunk [Unknown]
  - Tremor [Not Recovered/Not Resolved]
  - Weight decreased [Not Recovered/Not Resolved]
  - Confusional state [Not Recovered/Not Resolved]
  - Energy increased [Unknown]
  - Fatigue [Not Recovered/Not Resolved]
  - Headache [Unknown]
  - Erythema [Not Recovered/Not Resolved]
  - Fall [Unknown]
  - Urinary tract infection [Not Recovered/Not Resolved]
